FAERS Safety Report 8281553-2 (Version None)
Quarter: 2012Q2

REPORT INFORMATION
  Report Type: 
  Country: None (occurrence: None)
  Receive Date: 20120410
  Receipt Date: 20120329
  Transmission Date: 20120825
  Serious: Yes (Hospitalization)
  Sender: FDA-Public Use
  Company Number: DSJ-2012-01582

PATIENT
  Age: 9 Decade
  Sex: Female

DRUGS (3)
  1. CARVEDILOL [Concomitant]
  2. BENICAR [Suspect]
     Indication: HYPERTENSION
     Dosage: 40 MG (40 MG, 1 IN 1 D), PER ORAL
     Route: 048
     Dates: start: 20110101, end: 20120101
  3. AMLODIPINE [Concomitant]

REACTIONS (3)
  - HYPOTENSION [None]
  - RENAL DISORDER [None]
  - OEDEMA PERIPHERAL [None]
